FAERS Safety Report 15931708 (Version 1)
Quarter: 2019Q1

REPORT INFORMATION
  Report Type: Spontaneous
  Country: US (occurrence: US)
  Receive Date: 20190207
  Receipt Date: 20190207
  Transmission Date: 20190417
  Serious: Yes (Other)
  Sender: FDA-Public Use
  Company Number: None

PATIENT
  Age: 60 Year
  Sex: Female
  Weight: 104.4 kg

DRUGS (2)
  1. NORCO [Suspect]
     Active Substance: ACETAMINOPHEN\HYDROCODONE BITARTRATE
     Indication: FIBROMYALGIA
     Route: 048
     Dates: start: 20190122, end: 20190130
  2. CYCLOBENZAPRINE 5MG [Concomitant]
     Active Substance: CYCLOBENZAPRINE
     Dates: start: 20181220

REACTIONS (7)
  - Pruritus [None]
  - Irritable bowel syndrome [None]
  - Product substitution issue [None]
  - Nervous system disorder [None]
  - Anxiety [None]
  - Irritability [None]
  - Drug ineffective [None]

NARRATIVE: CASE EVENT DATE: 20190130
